FAERS Safety Report 14330840 (Version 1)
Quarter: 2017Q4

REPORT INFORMATION
  Report Type: Spontaneous
  Country: US (occurrence: US)
  Receive Date: 20171228
  Receipt Date: 20171228
  Transmission Date: 20180321
  Serious: Yes (Death, Other)
  Sender: FDA-Public Use
  Company Number: US-ROCHE-2046705

PATIENT
  Age: 59 Year
  Sex: Female

DRUGS (10)
  1. PROTAMINE [Concomitant]
     Active Substance: PROTAMINE
     Route: 065
  2. DILTIAZEM. [Concomitant]
     Active Substance: DILTIAZEM
     Indication: ATRIAL FIBRILLATION
  3. TRANEXAMIC ACID. [Concomitant]
     Active Substance: TRANEXAMIC ACID
     Indication: PRODUCT USED FOR UNKNOWN INDICATION
     Route: 042
  4. EPINEPHRINE. [Concomitant]
     Active Substance: EPINEPHRINE
     Dosage: 0.02 MG/KG/MIN
     Route: 065
  5. HEPARIN [Concomitant]
     Active Substance: HEPARIN SODIUM
     Indication: PRODUCT USED FOR UNKNOWN INDICATION
     Dosage: 1000 UNITS
     Route: 042
  6. ROCURONIUM [Concomitant]
     Active Substance: ROCURONIUM BROMIDE
  7. NOREPINEPHRINE. [Concomitant]
     Active Substance: NOREPINEPHRINE
     Dosage: 3 TO 5 MG/MINUTE
     Route: 065
  8. ACTILYSE [Suspect]
     Active Substance: ALTEPLASE
     Indication: INTRACARDIAC THROMBUS
     Dosage: 4 MG MIXED INTO 20 ML OF STERILE WATER WAS INFUSED SLOWLY
     Route: 042
  9. PROPOFOL. [Concomitant]
     Active Substance: PROPOFOL
  10. FENTANYL. [Concomitant]
     Active Substance: FENTANYL

REACTIONS (3)
  - Atrial thrombosis [Unknown]
  - Embolic cerebral infarction [Fatal]
  - Haemorrhage [Unknown]
